FAERS Safety Report 5662606-1 (Version None)
Quarter: 2008Q1

REPORT INFORMATION
  Report Type: 
  Country: None (occurrence: None)
  Receive Date: 20080313
  Receipt Date: 20080311
  Transmission Date: 20080703
  Serious: Yes (Death, Life-Threatening, Hospitalization)
  Sender: FDA-Public Use
  Company Number: NL-BRISTOL-MYERS SQUIBB COMPANY-14110811

PATIENT
  Age: 63 Year
  Sex: Male

DRUGS (4)
  1. CARBOPLATIN [Suspect]
     Indication: NON-SMALL CELL LUNG CANCER
     Dosage: 1 DOSAGE FORM: AREA UNDER CURVE 6 FOR 5 CYCLES
     Route: 042
     Dates: start: 20080213, end: 20080219
  2. DOCETAXEL [Suspect]
     Indication: NON-SMALL CELL LUNG CANCER
     Route: 042
     Dates: start: 20080213, end: 20080219
  3. CELECOXIB [Suspect]
     Indication: NON-SMALL CELL LUNG CANCER
     Route: 048
     Dates: start: 20080213, end: 20080219
  4. BLINDED: PLACEBO [Suspect]
     Indication: NON-SMALL CELL LUNG CANCER
     Route: 048
     Dates: start: 20080213, end: 20080219

REACTIONS (4)
  - DEHYDRATION [None]
  - DIARRHOEA [None]
  - FEBRILE NEUTROPENIA [None]
  - SEPSIS [None]
